FAERS Safety Report 8478039-9 (Version None)
Quarter: 2012Q2

REPORT INFORMATION
  Report Type: 
  Country: None (occurrence: None)
  Receive Date: 20120629
  Receipt Date: 20120620
  Transmission Date: 20120825
  Serious: Yes (Other)
  Sender: FDA-Public Use
  Company Number: FR-ASTRAZENECA-2012SE42042

PATIENT
  Age: 54 Year
  Sex: Male

DRUGS (2)
  1. QUETIAPINE FUMARATE [Suspect]
     Indication: SCHIZOPHRENIA
     Route: 048
     Dates: start: 20120407, end: 20120417
  2. QUETIAPINE FUMARATE [Suspect]
     Route: 048
     Dates: start: 20120418, end: 20120430

REACTIONS (4)
  - AGGRESSION [None]
  - DISINHIBITION [None]
  - AGITATION [None]
  - NERVOUSNESS [None]
